FAERS Safety Report 17680259 (Version 1)
Quarter: 2020Q2

REPORT INFORMATION
  Report Type: Spontaneous
  Country: US (occurrence: US)
  Receive Date: 20200417
  Receipt Date: 20200417
  Transmission Date: 20200714
  Serious: Yes (Hospitalization)
  Sender: FDA-Public Use
  Company Number: None

PATIENT
  Age: 50 Year
  Sex: Male
  Weight: 66.29 kg

DRUGS (8)
  1. CYCLOPHOSPHAMIDE. [Suspect]
     Active Substance: CYCLOPHOSPHAMIDE
     Indication: PLASMA CELL MYELOMA
     Dosage: ?          OTHER FREQUENCY:WEEKLY;?
     Route: 048
     Dates: start: 20200108
  2. CALCIUM 600MG [Concomitant]
  3. ONDANSETRON 8MG [Concomitant]
     Active Substance: ONDANSETRON
  4. DEXANETHASONE 4MG [Concomitant]
  5. CLONIDINE 0.1MG [Concomitant]
     Active Substance: CLONIDINE
  6. AMLODIPINE [Concomitant]
     Active Substance: AMLODIPINE BESYLATE
  7. VELCADE [Concomitant]
     Active Substance: BORTEZOMIB
  8. VITAMIN D [Concomitant]
     Active Substance: VITAMIN D NOS

REACTIONS (3)
  - Muscle atrophy [None]
  - Infection [None]
  - Full blood count decreased [None]

NARRATIVE: CASE EVENT DATE: 20200317
